FAERS Safety Report 11232507 (Version 1)
Quarter: 2015Q3

REPORT INFORMATION
  Report Type: Other
  Country: TR (occurrence: TR)
  Receive Date: 20150701
  Receipt Date: 20150701
  Transmission Date: 20151125
  Serious: Yes (Hospitalization)
  Sender: FDA-Public Use
  Company Number: TR-PURDUE PHARMA-CAN-2015-0005883

PATIENT
  Age: 6 Year
  Sex: Male

DRUGS (3)
  1. METHYLPHENIDATE HYDROCHLORIDE. [Interacting]
     Active Substance: METHYLPHENIDATE HYDROCHLORIDE
     Indication: ABNORMAL BEHAVIOUR
  2. VALPROIC ACID. [Concomitant]
     Active Substance: VALPROIC ACID
     Indication: EPILEPSY
     Dosage: 100 MG, BID
     Route: 065
  3. METHYLPHENIDATE HYDROCHLORIDE. [Suspect]
     Active Substance: METHYLPHENIDATE HYDROCHLORIDE
     Indication: ATTENTION DEFICIT/HYPERACTIVITY DISORDER
     Dosage: 5 MG, SINGLE
     Route: 065

REACTIONS (5)
  - Tongue movement disturbance [Recovered/Resolved]
  - Trismus [Recovered/Resolved]
  - Anxiety [Recovered/Resolved]
  - Excessive eye blinking [Recovered/Resolved]
  - Dyskinesia [Recovered/Resolved]
